FAERS Safety Report 10678209 (Version 2)
Quarter: 2015Q1

REPORT INFORMATION
  Report Type: Spontaneous
  Country: JP (occurrence: JP)
  Receive Date: 20141229
  Receipt Date: 20150219
  Transmission Date: 20150720
  Serious: Yes (Hospitalization)
  Sender: FDA-Public Use
  Company Number: JP-MYLANLABS-2014M1015512

PATIENT

DRUGS (8)
  1. PREDNISOLONE. [Suspect]
     Active Substance: PREDNISOLONE
     Indication: SYSTEMIC SCLEROSIS
     Dosage: (5 YEARS PRIOR PRESENTATION) 45 MG/DAY
     Route: 065
  2. PREDNISOLONE. [Suspect]
     Active Substance: PREDNISOLONE
     Dosage: TAPERED DOWN TO 2.5 MG/DAY OVER 2 YEARS
     Route: 065
  3. PREDNISOLONE. [Suspect]
     Active Substance: PREDNISOLONE
     Dosage: (2 MONTHS PRIOR ADMISSION) WEEK TRIAL OF 30 MG/DAY, MAINTAINED
     Route: 065
  4. TACROLIMUS CAPSULES 0.5MG [PFIZER] [Suspect]
     Active Substance: TACROLIMUS
     Dosage: (2 WEEKS POST PREDNISOLONE WEEK TRIAL) 3 MG/DAY
     Route: 065
  5. TACROLIMUS CAPSULES 0.5MG [PFIZER] [Suspect]
     Active Substance: TACROLIMUS
     Indication: SYSTEMIC SCLEROSIS
     Dosage: (2 MONTHS PRIOR ADMISSION) 1 MG/DAY
     Route: 065
  6. PREDNISOLONE. [Suspect]
     Active Substance: PREDNISOLONE
     Dosage: TAPERED DOWN TO 3 MG/DAY OVER 2 YEARS
     Route: 065
  7. PREDNISOLONE. [Suspect]
     Active Substance: PREDNISOLONE
     Dosage: (2 YEARS PRIOR PRESENTATION) 30MG
     Route: 065
  8. TACROLIMUS CAPSULES 0.5MG [PFIZER] [Suspect]
     Active Substance: TACROLIMUS
     Dosage: 2 MG, QD
     Route: 065

REACTIONS (1)
  - Scleroderma renal crisis [Not Recovered/Not Resolved]
